FAERS Safety Report 8499631-1 (Version None)
Quarter: 2012Q3

REPORT INFORMATION
  Report Type: 
  Country: None (occurrence: None)
  Receive Date: 20120710
  Receipt Date: 20120705
  Transmission Date: 20120928
  Serious: Yes (Death)
  Sender: FDA-Public Use
  Company Number: US-ASTELLAS-2012US005448

PATIENT
  Sex: Female

DRUGS (20)
  1. ACETAMINOPHEN W/ CODEINE [Concomitant]
     Indication: PAIN
     Dosage: 1 DF, Q 6HR PRN 300/30 MG
     Route: 048
  2. ALBUTEROL SULATE [Concomitant]
     Indication: PRODUCT USED FOR UNKNOWN INDICATION
     Dosage: 90 UG, PRN
     Route: 065
  3. POLYETHYLENE GLYCOL [Concomitant]
     Indication: CONSTIPATION
     Dosage: 17 G, UID/QD
     Route: 048
  4. VASOLEX [Concomitant]
     Indication: PRODUCT USED FOR UNKNOWN INDICATION
     Dosage: UNK
     Route: 061
  5. SODIUM CHLORIDE [Concomitant]
     Indication: PRODUCT USED FOR UNKNOWN INDICATION
     Dosage: 1 G, UID/QD
     Route: 048
  6. NASAL PREPARATIONS [Concomitant]
     Indication: NASAL DISCOMFORT
  7. FAMODITINE [Concomitant]
     Indication: PRODUCT USED FOR UNKNOWN INDICATION
     Dosage: 40 MG, BID
     Route: 048
  8. LEVETIRACETAM [Concomitant]
     Indication: BRAIN NEOPLASM
     Dosage: 250 MG, Q12 HOURS
     Route: 048
  9. SIMVASTATIN [Concomitant]
     Indication: PRODUCT USED FOR UNKNOWN INDICATION
     Dosage: 20 MG, UID/QD
     Route: 048
  10. NASAL PREPARATIONS [Concomitant]
     Indication: NASAL DRYNESS
     Dosage: 0.625 %, Q 4 HRS PRN
     Route: 045
  11. WITCH HAZEL [Concomitant]
     Indication: ANORECTAL DISORDER
     Dosage: UNK
     Route: 061
  12. AMLODIPINE [Concomitant]
     Indication: PRODUCT USED FOR UNKNOWN INDICATION
     Dosage: 10 MG, UID/QD
     Route: 048
  13. DEXAMETHASONE [Concomitant]
     Indication: PRODUCT USED FOR UNKNOWN INDICATION
     Dosage: 2 MG, Q12 HOURS
     Route: 048
  14. TRYPSIN [Concomitant]
     Indication: PRODUCT USED FOR UNKNOWN INDICATION
     Dosage: UNK
     Route: 061
  15. LABETALOL HCL [Concomitant]
     Indication: PRODUCT USED FOR UNKNOWN INDICATION
     Dosage: 100 MG, Q12 HOURS
     Route: 048
  16. ERLOTINIB HYDROCHLORIDE [Suspect]
     Indication: LUNG CARCINOMA CELL TYPE UNSPECIFIED STAGE 0
     Dosage: 150 MG, UID/QD
     Route: 048
     Dates: start: 20120401
  17. SERTRALINE HYDROCHLORIDE [Concomitant]
     Indication: DEPRESSION
     Dosage: 25 MG, UID/QD
     Route: 048
  18. APO-FOLIC ACID [Concomitant]
     Indication: PRODUCT USED FOR UNKNOWN INDICATION
     Dosage: 1 MG, UID/QD
     Route: 048
  19. INSULIN GLARGINE [Concomitant]
     Indication: DIABETES MELLITUS
     Dosage: UNK,28U AM, 20U PM
     Route: 059
  20. TUCKS                              /00343801/ [Concomitant]
     Indication: ANORECTAL DISORDER
     Dosage: UNK
     Route: 061

REACTIONS (4)
  - CARDIAC FAILURE [None]
  - PULMONARY EMBOLISM [None]
  - NEOPLASM MALIGNANT [None]
  - RESPIRATORY FAILURE [None]
